FAERS Safety Report 6202396-7 (Version None)
Quarter: 2009Q2

REPORT INFORMATION
  Report Type: 
  Country: None (occurrence: None)
  Receive Date: 20090521
  Receipt Date: 20090521
  Transmission Date: 20091009
  Serious: Yes (Life-Threatening, Hospitalization, Other)
  Sender: FDA-Public Use
  Company Number: None

PATIENT
  Age: 15 Year
  Sex: Female
  Weight: 53.0709 kg

DRUGS (2)
  1. SINGULAIR [Suspect]
     Indication: ASTHMA
     Dosage: 1 A DAY
     Dates: start: 20081101, end: 20090401
  2. SINGULAIR [Suspect]
     Indication: HYPERSENSITIVITY
     Dosage: 1 A DAY
     Dates: start: 20081101, end: 20090401

REACTIONS (4)
  - DEPRESSION [None]
  - MOOD ALTERED [None]
  - SUICIDAL IDEATION [None]
  - SUICIDE ATTEMPT [None]
